FAERS Safety Report 10086402 (Version 1)
Quarter: 2014Q2

REPORT INFORMATION
  Report Type: Report from Study
  Country: DE (occurrence: DE)
  Receive Date: 20140418
  Receipt Date: 20140418
  Transmission Date: 20141212
  Serious: Yes (Other)
  Sender: FDA-Public Use
  Company Number: DE-SA-2014SA048278

PATIENT
  Age: 57 Year
  Sex: Female
  Weight: 80 kg

DRUGS (7)
  1. MULTAQ [Suspect]
     Indication: ATRIAL FIBRILLATION
     Dates: start: 20120925
  2. BETA BLOCKING AGENTS [Concomitant]
     Dates: start: 201007
  3. PLATELET AGGREGATION INHIBITORS [Concomitant]
     Indication: THROMBOSIS PROPHYLAXIS
     Dates: start: 20120925
  4. XARELTO [Concomitant]
  5. BISOPROLOL [Concomitant]
  6. LOSARTAN [Concomitant]
  7. SIMVASTATIN [Concomitant]

REACTIONS (1)
  - Atrial fibrillation [Unknown]
